FAERS Safety Report 21444141 (Version 1)
Quarter: 2022Q4

REPORT INFORMATION
  Report Type: Spontaneous
  Country: US (occurrence: US)
  Receive Date: 20221012
  Receipt Date: 20221012
  Transmission Date: 20230112
  Serious: Yes (Other)
  Sender: FDA-Public Use
  Company Number: US-JNJFOC-20221002563

PATIENT
  Sex: Female

DRUGS (1)
  1. TYLENOL [Suspect]
     Active Substance: ACETAMINOPHEN
     Indication: Product used for unknown indication
     Dosage: 18 TO 20 TYLENOL AT THE SAME TIME
     Route: 065

REACTIONS (3)
  - Hallucination [Not Recovered/Not Resolved]
  - Overdose [Unknown]
  - Tremor [Not Recovered/Not Resolved]
